FAERS Safety Report 23123647 (Version 1)
Quarter: 2023Q4

REPORT INFORMATION
  Report Type: Report from Study
  Country: US (occurrence: US)
  Receive Date: 20231030
  Receipt Date: 20231030
  Transmission Date: 20240110
  Serious: Yes (Death, Other)
  Sender: FDA-Public Use
  Company Number: US-TAKEDA-2023TUS104688

PATIENT
  Age: 39 Year
  Sex: Female

DRUGS (4)
  1. TEDUGLUTIDE [Suspect]
     Active Substance: TEDUGLUTIDE
     Indication: Short-bowel syndrome
     Dosage: 0.490 MILLIGRAM, QD
     Route: 050
     Dates: start: 20230903
  2. TEDUGLUTIDE [Suspect]
     Active Substance: TEDUGLUTIDE
     Indication: Short-bowel syndrome
     Dosage: 0.490 MILLIGRAM, QD
     Route: 050
     Dates: start: 20230903
  3. TEDUGLUTIDE [Suspect]
     Active Substance: TEDUGLUTIDE
     Indication: Short-bowel syndrome
     Dosage: 0.490 MILLIGRAM, QD
     Route: 050
     Dates: start: 20230903
  4. TEDUGLUTIDE [Suspect]
     Active Substance: TEDUGLUTIDE
     Indication: Short-bowel syndrome
     Dosage: 0.490 MILLIGRAM, QD
     Route: 050
     Dates: start: 20230903

REACTIONS (1)
  - Death [Fatal]

NARRATIVE: CASE EVENT DATE: 20230914
